FAERS Safety Report 23234978 (Version 2)
Quarter: 2024Q1

REPORT INFORMATION
  Report Type: Spontaneous
  Country: US (occurrence: US)
  Receive Date: 20231128
  Receipt Date: 20240102
  Transmission Date: 20240410
  Serious: No
  Sender: FDA-Public Use
  Company Number: US-JNJFOC-20231168204

PATIENT
  Sex: Male

DRUGS (1)
  1. RISPERDAL [Suspect]
     Active Substance: RISPERIDONE
     Indication: Product used for unknown indication
     Dosage: VARYING DOSES OF 1.5 MG 2 MG AND 4 MG WITH VARYING FREQUENCIES OF ONCE AND TWICE DAILY
     Route: 048

REACTIONS (1)
  - Drug ineffective [Unknown]
